FAERS Safety Report 6706144 (Version 2)
Quarter: 2013Q2

REPORT INFORMATION
  Report Type: Spontaneous
  Country: US (occurrence: US)
  Receive Date: 20080722
  Receipt Date: 20130425
  Transmission Date: 20140414
  Serious: Yes (Other)
  Sender: FDA-Public Use
  Company Number: US-MERCK-0807USA02985

PATIENT
  Age: 40 Year
  Sex: Female

DRUGS (20)
  1. SINGULAIR [Suspect]
     Route: 048
  2. AMARYL [Suspect]
  3. BENAZEPRIL HYDROCHLORIDE [Suspect]
  4. BUPROPION HYDROCHLORIDE [Suspect]
  5. BUSPAR [Suspect]
  6. FLONASE [Suspect]
  7. HYDROCHLOROTHIAZIDE [Suspect]
  8. HYDROXYZINE HYDROCHLORIDE [Suspect]
  9. METFORMIN [Suspect]
  10. NEXIUM [Suspect]
  11. NITROQUICK [Suspect]
  12. SEROQUEL [Suspect]
  13. MK-9384 [Suspect]
  14. AVANDIA [Suspect]
  15. CARISOPRODOL [Suspect]
  16. HYDROCODONE BITARTRATE [Suspect]
  17. INSULIN [Suspect]
  18. NABUMETONE [Suspect]
  19. ZOCOR [Suspect]
  20. VITAMINS (UNSPECIFIED) [Suspect]

REACTIONS (3)
  - Abortion induced [Recovered/Resolved]
  - Foetal heart rate abnormal [Unknown]
  - Exposure during pregnancy [Unknown]
